FAERS Safety Report 8668724 (Version 2)
Quarter: 2012Q4

REPORT INFORMATION
  Report Type: 
  Country: US (occurrence: US)
  Receive Date: 20120717
  Receipt Date: 20120906
  Transmission Date: 20130627
  Serious: Yes (Hospitalization)
  Sender: FDA-Public Use
  Company Number: US-ASTRAZENECA-2012SE46283

PATIENT
  Age: 67 Year
  Sex: Female

DRUGS (4)
  1. NEXIUM [Suspect]
     Indication: GASTROOESOPHAGEAL REFLUX DISEASE
     Route: 048
     Dates: end: 201207
  2. LEVOFLOXACIN [Concomitant]
     Indication: HELICOBACTER INFECTION
     Route: 048
     Dates: start: 20120823
  3. METRONIDAZOLE [Concomitant]
     Indication: HELICOBACTER INFECTION
     Route: 048
     Dates: start: 201208
  4. OMEPRAZOLE [Concomitant]
     Route: 048

REACTIONS (8)
  - Helicobacter infection [Recovering/Resolving]
  - Aphagia [Unknown]
  - Gastrooesophageal reflux disease [Unknown]
  - Nausea [Unknown]
  - Malaise [Unknown]
  - Vomiting [Unknown]
  - Abdominal pain upper [Unknown]
  - Drug dose omission [Unknown]
